FAERS Safety Report 9645619 (Version 1)
Quarter: 2013Q4

REPORT INFORMATION
  Report Type: Spontaneous
  Country: CO (occurrence: CO)
  Receive Date: 20131025
  Receipt Date: 20131025
  Transmission Date: 20140711
  Serious: Yes (Other)
  Sender: FDA-Public Use
  Company Number: CO-PFIZER INC-2013303145

PATIENT
  Age: 37 Year
  Sex: Male

DRUGS (1)
  1. PRISTIQ [Suspect]
     Indication: PREMATURE EJACULATION
     Dosage: 50 MG, 1X/DAY
     Route: 048
     Dates: start: 201306, end: 2013

REACTIONS (3)
  - Hypersensitivity [Unknown]
  - Erythema [Unknown]
  - Off label use [Unknown]
